FAERS Safety Report 4906205-5 (Version None)
Quarter: 2006Q1

REPORT INFORMATION
  Report Type: 
  Country: None (occurrence: None)
  Receive Date: 20060207
  Receipt Date: 20060126
  Transmission Date: 20060701
  Serious: Yes (Other)
  Sender: FDA-Public Use
  Company Number: GXKR2006NL00653

PATIENT
  Age: 40 Year
  Sex: Female

DRUGS (5)
  1. ALPRAZOLAM [Suspect]
     Indication: PANIC ATTACK
     Dosage: 0.5 MG, TID, ORAL
     Route: 048
     Dates: start: 20051108, end: 20051221
  2. OXAZEPAM [Concomitant]
  3. EFFEXOR [Concomitant]
  4. NOZINAN (LEVOMEPROMAZINE) [Concomitant]
  5. ZYPREXA [Concomitant]

REACTIONS (4)
  - AGGRESSION [None]
  - AGITATION [None]
  - SELF MUTILATION [None]
  - SUICIDAL IDEATION [None]
